FAERS Safety Report 6131811-2 (Version None)
Quarter: 2009Q1

REPORT INFORMATION
  Report Type: 
  Country: None (occurrence: None)
  Receive Date: 20090323
  Receipt Date: 20090307
  Transmission Date: 20090719
  Serious: Yes (Hospitalization)
  Sender: FDA-Public Use
  Company Number: ENTC2009-0069

PATIENT
  Age: 78 Year
  Sex: Female

DRUGS (9)
  1. STALEVO 100 [Suspect]
     Indication: PARKINSON'S DISEASE
     Dosage: 100 MG, TID ORAL
     Route: 048
     Dates: start: 20081222, end: 20090208
  2. LUMINALE [Concomitant]
  3. CLOZAPINE [Concomitant]
  4. GARDENALE [Concomitant]
  5. ZESTRIL [Concomitant]
  6. FREAMINE [Concomitant]
  7. CATAPRESAN [Concomitant]
  8. CLEXANE [Concomitant]
  9. NANDROLONE DECANOATE [Concomitant]

REACTIONS (5)
  - ALANINE AMINOTRANSFERASE INCREASED [None]
  - ASPARTATE AMINOTRANSFERASE INCREASED [None]
  - BLOOD LACTATE DEHYDROGENASE INCREASED [None]
  - GAMMA-GLUTAMYLTRANSFERASE INCREASED [None]
  - LIVER DISORDER [None]
